FAERS Safety Report 7512434-7 (Version None)
Quarter: 2011Q2

REPORT INFORMATION
  Report Type: 
  Country: None (occurrence: None)
  Receive Date: 20110531
  Receipt Date: 20110518
  Transmission Date: 20111010
  Serious: Yes (Life-Threatening, Other)
  Sender: FDA-Public Use
  Company Number: JP-ROCHE-763855

PATIENT
  Sex: Female
  Weight: 44 kg

DRUGS (5)
  1. PALONOSETRON HYDROCHLORIDE [Concomitant]
     Route: 041
     Dates: start: 20110218, end: 20110218
  2. DEXAMETHASONE [Concomitant]
     Dates: start: 20110218, end: 20110218
  3. AVASTIN [Suspect]
     Indication: RECTAL CANCER
     Route: 041
     Dates: start: 20110218, end: 20110218
  4. XELODA [Suspect]
     Indication: RECTAL CANCER
     Dosage: DRUG NAME: XELODA 300
     Route: 048
     Dates: start: 20110218, end: 20110222
  5. OXALIPLATIN [Concomitant]
     Route: 041
     Dates: start: 20110218, end: 20110218

REACTIONS (2)
  - GASTROINTESTINAL PERFORATION [None]
  - SEPTIC SHOCK [None]
